FAERS Safety Report 5846369-2 (Version None)
Quarter: 2008Q3

REPORT INFORMATION
  Report Type: 
  Country: None (occurrence: None)
  Receive Date: 20080815
  Receipt Date: 20080805
  Transmission Date: 20090109
  Serious: Yes (Death)
  Sender: FDA-Public Use
  Company Number: US-WYE-H00979507

PATIENT
  Sex: Female

DRUGS (4)
  1. PREMPRO [Suspect]
  2. MEDROXYPROGESTERONE [Suspect]
  3. ESTRADIOL [Suspect]
  4. CYCRIN [Suspect]

REACTIONS (1)
  - CEREBROVASCULAR ACCIDENT [None]
